FAERS Safety Report 16812812 (Version 1)
Quarter: 2019Q3

REPORT INFORMATION
  Report Type: Spontaneous
  Country: GR (occurrence: GR)
  Receive Date: 20190916
  Receipt Date: 20190916
  Transmission Date: 20191005
  Serious: No
  Sender: FDA-Public Use
  Company Number: GR-JAZZ-2019-GR-003095

PATIENT
  Age: 10 Year
  Sex: Female
  Weight: 29 kg

DRUGS (5)
  1. TRONDAMET [Concomitant]
     Indication: PRODUCT USED FOR UNKNOWN INDICATION
     Dosage: 6 MG, BID
     Route: 042
     Dates: start: 20120223, end: 20120229
  2. ASPARAGINASE [Suspect]
     Active Substance: ASPARAGINASE
     Indication: ACUTE LYMPHOCYTIC LEUKAEMIA
     Dosage: 25000 IU, 1 TOTAL
     Route: 042
     Dates: start: 20120229, end: 20120229
  3. DEXAMETHASONE. [Concomitant]
     Active Substance: DEXAMETHASONE
     Indication: PRODUCT USED FOR UNKNOWN INDICATION
     Dosage: 7 MG, BID
     Route: 042
     Dates: start: 20120223, end: 20120229
  4. LACTULOSE. [Concomitant]
     Active Substance: LACTULOSE
     Indication: HEPATIC ENZYME INCREASED
     Dosage: 5 ML, QH
     Route: 048
     Dates: start: 20120228
  5. URSOFALK [Concomitant]
     Active Substance: URSODIOL
     Indication: HEPATIC ENZYME INCREASED
     Dosage: 125 MG, 12 HOUR
     Route: 048
     Dates: start: 20120228

REACTIONS (5)
  - Tachypnoea [Recovering/Resolving]
  - Headache [Recovering/Resolving]
  - Dyspnoea [Recovering/Resolving]
  - Erythema [Recovering/Resolving]
  - Hypersensitivity [Recovering/Resolving]

NARRATIVE: CASE EVENT DATE: 20120229
